FAERS Safety Report 5842467-8 (Version None)
Quarter: 2008Q3

REPORT INFORMATION
  Report Type: 
  Country: None (occurrence: None)
  Receive Date: 20080731
  Receipt Date: 20080620
  Transmission Date: 20090109
  Serious: No
  Sender: FDA-Public Use
  Company Number: US200806005105

PATIENT
  Age: 67 Year
  Sex: Male

DRUGS (9)
  1. BYETTA [Suspect]
     Indication: TYPE 2 DIABETES MELLITUS
     Dosage: 5 UG, 2/D, SUBCUTANEOUS; 10 UG, 2/D, SUBCUTANEOUS
     Route: 058
     Dates: start: 20070601, end: 20070701
  2. BYETTA [Suspect]
     Indication: TYPE 2 DIABETES MELLITUS
     Dosage: 5 UG, 2/D, SUBCUTANEOUS; 10 UG, 2/D, SUBCUTANEOUS
     Route: 058
     Dates: start: 20070701
  3. EXENATIDE 10MCG PEN, DISPOSABLE DEVICE (EXENATIDE PEN (10MCG)0 PEN,DIS [Concomitant]
  4. METFORMIN HCL [Concomitant]
  5. CRESTOR [Concomitant]
  6. LISINOPRIL /USA/ (LISINOPRIL) [Concomitant]
  7. FINASTERIDE [Concomitant]
  8. BISOPROLOL W/HYDROCHLOROTHIAZIDE (BISOPROLOL, HYDROCHLOROTHIAZIDE) [Concomitant]
  9. DOXAZOSIN MESYLATE [Concomitant]

REACTIONS (2)
  - ABNORMAL DREAMS [None]
  - PANIC REACTION [None]
